FAERS Safety Report 13940536 (Version 1)
Quarter: 2017Q3

REPORT INFORMATION
  Report Type: Report from Study
  Country: JP (occurrence: JP)
  Receive Date: 20170906
  Receipt Date: 20170906
  Transmission Date: 20171127
  Serious: Yes (Other)
  Sender: FDA-Public Use
  Company Number: JP-TEVA-804405ISR

PATIENT
  Age: 32 Year
  Sex: Female

DRUGS (6)
  1. PROGYNON B [Concomitant]
     Dosage: 4 MILLIGRAM DAILY;
     Route: 065
     Dates: start: 20170319, end: 20170321
  2. PROGYNON B [Concomitant]
     Dosage: 2 MILLIGRAM DAILY;
     Route: 048
     Dates: start: 20170316, end: 20170318
  3. PROGYNON B [Concomitant]
     Dosage: 4 MILLIGRAM DAILY;
     Route: 065
     Dates: start: 20170325, end: 20170408
  4. HCG [Concomitant]
     Active Substance: GONADOTROPHIN, CHORIONIC
     Dosage: 2000 IU (INTERNATIONAL UNIT) DAILY;
     Route: 030
     Dates: start: 20170328, end: 20170328
  5. LUTEUM VAGINAL SUPPOSITORY 400MG [Suspect]
     Active Substance: PROGESTERONE
     Indication: PROGESTIN REPLACEMENT THERAPY
     Dosage: 800 MILLIGRAM DAILY;
     Route: 067
     Dates: start: 20170325, end: 20170408
  6. PROGYNON B [Concomitant]
     Dosage: 6 MILLIGRAM DAILY;
     Route: 065
     Dates: start: 20170322, end: 20170324

REACTIONS (1)
  - Haemorrhage [Recovered/Resolved]

NARRATIVE: CASE EVENT DATE: 20170331
